FAERS Safety Report 16495933 (Version 7)
Quarter: 2020Q1

REPORT INFORMATION
  Report Type: Report from Study
  Country: US (occurrence: US)
  Receive Date: 20190628
  Receipt Date: 20200323
  Transmission Date: 20200409
  Serious: No
  Sender: FDA-Public Use
  Company Number: PHEH2019US027007

PATIENT
  Age: 41 Year
  Sex: Female

DRUGS (2)
  1. GILENYA [Suspect]
     Active Substance: FINGOLIMOD HYDROCHLORIDE
     Dosage: 0.5 MG, QD
     Route: 048
     Dates: start: 20180830
  2. GILENYA [Suspect]
     Active Substance: FINGOLIMOD HYDROCHLORIDE
     Indication: MULTIPLE SCLEROSIS
     Dosage: 0.5 MG
     Route: 048
     Dates: start: 20180821

REACTIONS (15)
  - Liver function test increased [Unknown]
  - Peroneal nerve palsy [Unknown]
  - Memory impairment [Unknown]
  - Migraine [Unknown]
  - Speech disorder [Not Recovered/Not Resolved]
  - Post-traumatic stress disorder [Unknown]
  - Amnesia [Unknown]
  - Gastrointestinal wall thickening [Unknown]
  - Musculoskeletal chest pain [Unknown]
  - Decreased appetite [Unknown]
  - Depression [Unknown]
  - Temperature intolerance [Unknown]
  - Hypoaesthesia [Unknown]
  - Abdominal wall wound [Unknown]
  - Feeling abnormal [Unknown]

NARRATIVE: CASE EVENT DATE: 20180821
